FAERS Safety Report 6421430 (Version 29)
Quarter: 2013Q4

REPORT INFORMATION
  Report Type: Spontaneous
  Country: US (occurrence: US)
  Receive Date: 20070920
  Receipt Date: 20131001
  Transmission Date: 20140711
  Serious: Yes (Hospitalization, Other)
  Sender: FDA-Public Use
  Company Number: PHEH2007US12302

PATIENT
  Age: 48 Year
  Sex: Female
  Weight: 87.53 kg

DRUGS (62)
  1. ZOMETA [Suspect]
     Dosage: 4 MG
     Route: 042
     Dates: start: 20070328
  2. AREDIA [Suspect]
     Dosage: 60 MG, QMO
     Route: 042
     Dates: start: 20051108
  3. STEROIDS NOS [Concomitant]
  4. KLONOPIN [Concomitant]
  5. ZOLPIDEM [Concomitant]
  6. MULTIVITAMINS [Concomitant]
  7. MIRALAX [Concomitant]
  8. CALCIUM [Concomitant]
  9. XANAX [Concomitant]
     Dosage: 0.5 MG, UNK
  10. DOXYCYCLINE [Concomitant]
     Dosage: 100 MG, UNK
     Dates: start: 20010407
  11. LAMISIL                            /00992601/ [Concomitant]
  12. PREDNISONE [Concomitant]
     Dosage: 20 MG, UNK
  13. FRIVENT [Concomitant]
  14. PREMPRO [Concomitant]
  15. FLUVAX [Concomitant]
  16. BIAXIN [Concomitant]
  17. NEURONTIN [Concomitant]
  18. FLOXIN ^DAIICHI^ [Concomitant]
  19. UNASYN [Concomitant]
  20. LEVOQUIN [Concomitant]
  21. ATIVAN [Concomitant]
  22. DEMEROL [Concomitant]
  23. ALKERAN [Concomitant]
  24. CYTOXAN [Concomitant]
  25. CYCLOPHOSPHAMIDE [Concomitant]
  26. MELPHALAN [Concomitant]
  27. OXYCODONE [Concomitant]
  28. SOLU-MEDROL [Concomitant]
  29. DIPHENHYDRAMINE [Concomitant]
  30. HYDROCORTISONE [Concomitant]
  31. DURAGESIC [Concomitant]
  32. KLOR-CON [Concomitant]
  33. PROMETHAZINE [Concomitant]
  34. FLEXERIL [Concomitant]
  35. ZITHROMAX Z-PACK [Concomitant]
  36. LASIX [Concomitant]
  37. K-DUR [Concomitant]
  38. LEVAQUIN [Concomitant]
  39. LIDODERM [Concomitant]
  40. CIPRO ^MILES^ [Concomitant]
  41. METHADONE [Concomitant]
  42. AVELOX [Concomitant]
  43. AMBIEN [Concomitant]
  44. NEXIUM [Concomitant]
  45. METOPROLOL [Concomitant]
  46. TOPROL XL [Concomitant]
  47. COLACE [Concomitant]
  48. DILAUDID [Concomitant]
  49. ROXANOL [Concomitant]
  50. MS CONTIN [Concomitant]
  51. ALEVE                              /00256202/ [Concomitant]
  52. OXAZEPAM [Concomitant]
  53. LOPROX [Concomitant]
  54. VITAMINS [Concomitant]
  55. VINCRISTINE [Concomitant]
  56. PENICILLIN ^GRUNENTHAL^ [Concomitant]
  57. ONDANSETRON HYDROCHLORIDE [Concomitant]
  58. FILGRASTIM [Concomitant]
  59. METOPROLOL SUCCINATE [Concomitant]
  60. BACTRIM [Concomitant]
  61. ZOVIRAX [Concomitant]
  62. SOMA [Concomitant]

REACTIONS (128)
  - Acute respiratory distress syndrome [Unknown]
  - Upper respiratory tract infection [Unknown]
  - Pneumonia [Unknown]
  - Lower respiratory tract infection [Recovering/Resolving]
  - Chills [Unknown]
  - Nasal congestion [Unknown]
  - Sinus congestion [Unknown]
  - Dyspnoea [Unknown]
  - Oropharyngeal pain [Unknown]
  - Hyperhidrosis [Unknown]
  - Oxygen saturation decreased [Unknown]
  - Wheezing [Unknown]
  - Body temperature increased [Unknown]
  - Lung consolidation [Unknown]
  - Haemophilus infection [Unknown]
  - Fungal infection [Unknown]
  - Rhonchi [Unknown]
  - Systemic inflammatory response syndrome [Unknown]
  - Sepsis [Unknown]
  - Osteonecrosis of jaw [Recovering/Resolving]
  - Bone disorder [Unknown]
  - Pain [Unknown]
  - Lymphadenopathy [Unknown]
  - Infection [Not Recovered/Not Resolved]
  - Deformity [Unknown]
  - Poor personal hygiene [Not Recovered/Not Resolved]
  - Discomfort [Unknown]
  - Hypophagia [Unknown]
  - Emotional distress [Unknown]
  - Life expectancy shortened [Unknown]
  - Anhedonia [Unknown]
  - Physical disability [Unknown]
  - Injury [Unknown]
  - Anxiety [Unknown]
  - Dental caries [Unknown]
  - Depression [Unknown]
  - Denture wearer [Unknown]
  - Thyroid neoplasm [Unknown]
  - Parathyroid tumour benign [Unknown]
  - Hair follicle tumour benign [Unknown]
  - Plasma cell myeloma [Unknown]
  - Light chain analysis [Unknown]
  - Nodule [Unknown]
  - Tenderness [Unknown]
  - Beta 2 microglobulin increased [Unknown]
  - Disease progression [Unknown]
  - Monoclonal immunoglobulin present [Unknown]
  - Bronchitis [Unknown]
  - Cough [Unknown]
  - Pleuritic pain [Not Recovered/Not Resolved]
  - Toxicity to various agents [Unknown]
  - Polyneuropathy [Unknown]
  - Neuropathy peripheral [Unknown]
  - Myalgia [Unknown]
  - Facial pain [Unknown]
  - Burning sensation [Unknown]
  - Paraesthesia [Unknown]
  - Metastases to spine [Unknown]
  - Bone pain [Not Recovered/Not Resolved]
  - Intestinal obstruction [Recovering/Resolving]
  - Procedural pain [Unknown]
  - Intervertebral disc protrusion [Unknown]
  - Osteopenia [Unknown]
  - Bone lesion [Unknown]
  - Osteonecrosis [Unknown]
  - Metastases to bone [Unknown]
  - Renal failure [Unknown]
  - Anisocytosis [Unknown]
  - Plasmacytosis [Unknown]
  - Giant cell tumour of tendon sheath [Unknown]
  - Rib fracture [Unknown]
  - Compression fracture [Unknown]
  - Blood calcium decreased [Unknown]
  - Blood triglycerides increased [Unknown]
  - Os trigonum syndrome [Unknown]
  - Protein urine absent [Unknown]
  - Cervical dysplasia [Unknown]
  - Myositis [Unknown]
  - Foot fracture [Unknown]
  - Pain in extremity [Unknown]
  - Hypertrophy [Unknown]
  - Plantar fasciitis [Unknown]
  - Asthenia [Unknown]
  - Abdominal pain upper [Unknown]
  - Fatigue [Unknown]
  - Blood glucose increased [Unknown]
  - Blood lactate dehydrogenase increased [Unknown]
  - Glomerular filtration rate decreased [Unknown]
  - Renal cyst [Unknown]
  - Tachycardia [Unknown]
  - Hypertension [Unknown]
  - Generalised oedema [Unknown]
  - Abdominal distension [Unknown]
  - Abdominal discomfort [Unknown]
  - Urinary tract infection [Unknown]
  - Haematuria [Recovered/Resolved]
  - Hypercalcaemia [Unknown]
  - Renal failure acute [Unknown]
  - Dizziness [Unknown]
  - Tremor [Unknown]
  - Hypophosphataemia [Unknown]
  - Spondylolisthesis [Unknown]
  - Agitation [Unknown]
  - Cervical vertebral fracture [Unknown]
  - Weight decreased [Unknown]
  - Appetite disorder [Unknown]
  - Pulmonary calcification [Unknown]
  - Pneumothorax [Unknown]
  - Intervertebral disc degeneration [Unknown]
  - Osteoarthritis [Unknown]
  - Aortic arteriosclerosis [Unknown]
  - Vulval haematoma [Unknown]
  - Altered state of consciousness [Unknown]
  - Insomnia [Unknown]
  - Staphylococcal infection [Unknown]
  - Chronic obstructive pulmonary disease [Unknown]
  - Clostridium difficile colitis [Unknown]
  - Lower limb fracture [Unknown]
  - Fibula fracture [Unknown]
  - Arthropathy [Unknown]
  - Exostosis [Unknown]
  - Pyrexia [Unknown]
  - Muscular weakness [Unknown]
  - Joint stiffness [Unknown]
  - Hernia [Unknown]
  - Oedema peripheral [Unknown]
  - Osteolysis [Unknown]
  - Pathological fracture [Unknown]
